FAERS Safety Report 22168528 (Version 1)
Quarter: 2023Q2

REPORT INFORMATION
  Report Type: Spontaneous
  Country: FR (occurrence: FR)
  Receive Date: 20230403
  Receipt Date: 20230403
  Transmission Date: 20230722
  Serious: Yes (Other)
  Sender: FDA-Public Use
  Company Number: FR-JNJFOC-20210930128

PATIENT
  Age: 64 Year
  Sex: Male
  Weight: 67 kg

DRUGS (2)
  1. LAZERTINIB [Suspect]
     Active Substance: LAZERTINIB
     Indication: Lung neoplasm malignant
     Dosage: 1012676
     Route: 048
     Dates: start: 20210914, end: 20210914
  2. AMIVANTAMAB [Suspect]
     Active Substance: AMIVANTAMAB
     Indication: Lung neoplasm malignant
     Dosage: 1050 MG OF RECONSTITUTED IN 250 ML NACL BAG, INFUSED OVER 5 TO 10 MINUTES, (184049, 205423, 232615)
     Dates: start: 20210914, end: 20210914

REACTIONS (2)
  - Accidental exposure to product [Unknown]
  - Wrong patient received product [Recovered/Resolved]

NARRATIVE: CASE EVENT DATE: 20210914
